FAERS Safety Report 14967178 (Version 1)
Quarter: 2018Q2

REPORT INFORMATION
  Report Type: Report from Study
  Country: ES (occurrence: ES)
  Receive Date: 20180604
  Receipt Date: 20180604
  Transmission Date: 20180711
  Serious: Yes (Death, Life-Threatening, Other)
  Sender: FDA-Public Use
  Company Number: ES-CHEPLA-C20170342

PATIENT

DRUGS (3)
  1. ALL-TRANS RETINOIC ACID (ATRA) [Suspect]
     Active Substance: TRETINOIN
     Indication: ACUTE PROMYELOCYTIC LEUKAEMIA
     Dosage: 45 MG/MM2/D
     Route: 065
  2. IDARUBICIN [Suspect]
     Active Substance: IDARUBICIN
     Indication: ACUTE PROMYELOCYTIC LEUKAEMIA
     Dosage: 5, 7, 12 MG/MM2/D
     Route: 065
  3. MMITOXANTRONE [Suspect]
     Active Substance: MITOXANTRONE HYDROCHLORIDE
     Indication: ACUTE PROMYELOCYTIC LEUKAEMIA
     Dosage: 10 MG/MM2/D
     Route: 065

REACTIONS (13)
  - Thrombosis [Fatal]
  - Thrombocytopenia [Unknown]
  - Haemorrhage [Fatal]
  - Cardiogenic shock [Fatal]
  - Hepatotoxicity [Unknown]
  - Oral disorder [Unknown]
  - Leukaemia recurrent [Unknown]
  - Haematotoxicity [None]
  - Infection [Fatal]
  - Acute promyelocytic leukaemia differentiation syndrome [Fatal]
  - Neutropenia [Unknown]
  - Diarrhoea [Unknown]
  - Neoplasm [Fatal]
